FAERS Safety Report 5484077-0 (Version None)
Quarter: 2007Q4

REPORT INFORMATION
  Report Type: 
  Country: None (occurrence: None)
  Receive Date: 20071009
  Receipt Date: 20071009
  Transmission Date: 20080405
  Serious: Yes (Hospitalization)
  Sender: FDA-Public Use
  Company Number: None

PATIENT
  Age: 71 Year
  Sex: Male

DRUGS (2)
  1. CEFEPIME [Suspect]
     Indication: URINARY TRACT INFECTION
     Dosage: 2GM ONCE IV
     Route: 042
     Dates: start: 20070812, end: 20070813
  2. CIPROFLOXACIN [Suspect]
     Indication: URINARY TRACT INFECTION
     Dosage: 500MG OTHER PO
     Route: 048
     Dates: start: 20070823, end: 20070902

REACTIONS (3)
  - DEHYDRATION [None]
  - DIARRHOEA [None]
  - URINARY TRACT INFECTION [None]
